FAERS Safety Report 4997483-5 (Version None)
Quarter: 2006Q2

REPORT INFORMATION
  Report Type: 
  Country: None (occurrence: None)
  Receive Date: 20060509
  Receipt Date: 20050824
  Transmission Date: 20061013
  Serious: Yes (Hospitalization)
  Sender: FDA-Public Use
  Company Number: US-MERCK-0508USA04138

PATIENT
  Age: 70 Year
  Sex: Female
  Weight: 75 kg

DRUGS (7)
  1. VIOXX [Suspect]
     Indication: BONE PAIN
     Route: 048
     Dates: start: 20040201, end: 20040501
  2. VIOXX [Suspect]
     Route: 048
     Dates: start: 20000101, end: 20030101
  3. VIOXX [Suspect]
     Indication: BACK DISORDER
     Route: 048
     Dates: start: 20040201, end: 20040501
  4. VIOXX [Suspect]
     Route: 048
     Dates: start: 20000101, end: 20030101
  5. TYLENOL (CAPLET) [Concomitant]
     Route: 065
  6. OS-CAL + D [Concomitant]
     Route: 065
  7. EVISTA [Concomitant]
     Route: 065

REACTIONS (13)
  - BACK DISORDER [None]
  - BACK PAIN [None]
  - BREAST CANCER [None]
  - CEREBROVASCULAR ACCIDENT [None]
  - EROSIVE OESOPHAGITIS [None]
  - FALL [None]
  - GAIT DISTURBANCE [None]
  - HYPOTHYROIDISM [None]
  - MUSCULAR WEAKNESS [None]
  - NECK PAIN [None]
  - OSTEOMYELITIS [None]
  - OSTEOPOROSIS [None]
  - SPINAL COMPRESSION FRACTURE [None]
